FAERS Safety Report 8446309-6 (Version None)
Quarter: 2012Q2

REPORT INFORMATION
  Report Type: 
  Country: None (occurrence: None)
  Receive Date: 20120618
  Receipt Date: 20120614
  Transmission Date: 20120825
  Serious: No
  Sender: FDA-Public Use
  Company Number: US-BAYER-2012-059867

PATIENT
  Age: 81 Year
  Sex: Male
  Weight: 72.562 kg

DRUGS (6)
  1. ASPIRIN [Suspect]
  2. CHOLESTEROL [Concomitant]
  3. PROSPAROL [Concomitant]
  4. ZETIA [Concomitant]
  5. REMERON [Concomitant]
  6. ALEVE (CAPLET) [Suspect]
     Indication: MYALGIA
     Dosage: 1 DF, BID
     Route: 048

REACTIONS (1)
  - NO ADVERSE EVENT [None]
